FAERS Safety Report 24444415 (Version 1)
Quarter: 2024Q4

REPORT INFORMATION
  Report Type: Spontaneous
  Country: US (occurrence: None)
  Receive Date: 20241015
  Receipt Date: 20241015
  Transmission Date: 20250115
  Serious: No
  Sender: Public
  Company Number: None

PATIENT
  Age: 65 Year
  Sex: Female
  Weight: 72.12 kg

DRUGS (1)
  1. TREMFYA [Suspect]
     Active Substance: GUSELKUMAB
     Indication: Psoriasis
     Dosage: OTHER FREQUENCY : WK0ANDWK4ASDIR;?INJECT 100MG SUBCUTANEOUSLY AT WEEK 0 AND WEEK 4 AS DIRECTED.?
     Route: 058
     Dates: start: 201905

REACTIONS (1)
  - Pneumonia [None]
